FAERS Safety Report 8647468 (Version 2)
Quarter: 2012Q4

REPORT INFORMATION
  Report Type: 
  Country: GB (occurrence: GB)
  Receive Date: 20120703
  Receipt Date: 20121019
  Transmission Date: 20130627
  Serious: Yes (Other)
  Sender: FDA-Public Use
  Company Number: GB-PFIZER INC-2012153342

PATIENT
  Age: 69 Year
  Sex: Male

DRUGS (5)
  1. METRONIDAZOLE [Suspect]
     Indication: INFECTION
     Dosage: 400 mg, 3x/day
     Route: 048
     Dates: start: 20111117, end: 20111118
  2. CO-CODAMOL [Concomitant]
     Indication: PAIN
     Dosage: 2 DF, 4x/day, 2 up to 4 times a day
     Route: 048
     Dates: start: 20111117
  3. DICLOFENAC [Concomitant]
     Indication: PAIN
     Dosage: 50 mg, 3x/day
     Dates: start: 20111117
  4. LACOSAMIDE [Concomitant]
     Indication: EPILEPSY
     Dosage: 150 mg, 2x/day
     Route: 048
  5. EPILIM CHRONO [Concomitant]
     Indication: EPILEPSY
     Dosage: 500 mg, 2x/day
     Route: 048

REACTIONS (1)
  - Epilepsy [Recovered/Resolved]
